FAERS Safety Report 7660105 (Version 4)
Quarter: 2012Q4

REPORT INFORMATION
  Report Type: 
  Country: JP (occurrence: JP)
  Receive Date: 20101108
  Receipt Date: 20121231
  Transmission Date: 20130627
  Serious: Yes (Death, Hospitalization)
  Sender: FDA-Public Use
  Company Number: PHHY2010JP72694

PATIENT
  Age: 64 Year
  Sex: Male
  Weight: 43 kg

DRUGS (5)
  1. ZOMETA [Suspect]
     Indication: METASTASES TO BONE
     Dosage: 4 mg, QW4
     Route: 041
     Dates: start: 20070110, end: 20071017
  2. DECADRON [Concomitant]
     Indication: PROSTATE CANCER
     Dosage: 1 mg, QD
     Route: 048
     Dates: start: 20060206, end: 20090113
  3. DECADRON [Concomitant]
     Dosage: 1 mg, QD
     Route: 048
     Dates: start: 20090218, end: 20090317
  4. HONVAN [Concomitant]
     Indication: PROSTATE CANCER
     Dosage: 50 mg, QD
     Route: 048
     Dates: start: 20070822, end: 20071212
  5. VESICARE [Concomitant]
     Indication: HYPERTONIC BLADDER
     Dosage: 5 mg, QD
     Route: 048
     Dates: start: 20070822, end: 20091015

REACTIONS (3)
  - Malignant neoplasm progression [Fatal]
  - General physical health deterioration [Fatal]
  - Osteomyelitis [Not Recovered/Not Resolved]
